FAERS Safety Report 7135259-3 (Version None)
Quarter: 2010Q4

REPORT INFORMATION
  Report Type: 
  Country: None (occurrence: None)
  Receive Date: 20101203
  Receipt Date: 20101123
  Transmission Date: 20110411
  Serious: Yes (Hospitalization)
  Sender: FDA-Public Use
  Company Number: A0832749A

PATIENT
  Age: 61 Year
  Sex: Male
  Weight: 154.5 kg

DRUGS (9)
  1. AVANDIA [Suspect]
     Dosage: 4MG TWICE PER DAY
     Route: 048
     Dates: start: 19991123, end: 20080101
  2. GLUCOPHAGE [Concomitant]
  3. LOPID [Concomitant]
  4. ATENOLOL [Concomitant]
  5. METHOCARBAMOL [Concomitant]
  6. COMBIVENT [Concomitant]
  7. LEVITRA [Concomitant]
  8. MERIDIA [Concomitant]
  9. LISINOPRIL [Concomitant]

REACTIONS (1)
  - MYOCARDIAL INFARCTION [None]
